FAERS Safety Report 4603836-7 (Version None)
Quarter: 2005Q1

REPORT INFORMATION
  Report Type: 
  Country: None (occurrence: None)
  Receive Date: 20050308
  Receipt Date: 20050131
  Transmission Date: 20050727
  Serious: Yes (Hospitalization)
  Sender: FDA-Public Use
  Company Number: SAE21-027-05-00004

PATIENT
  Age: 69 Year
  Sex: Male
  Weight: 75 kg

DRUGS (7)
  1. HECTOROL [Suspect]
     Indication: HYPERPARATHYROIDISM SECONDARY
     Dosage: 1.5 MCG 3X WEEK IV
     Route: 042
     Dates: start: 20041021, end: 20041113
  2. DILTIAZEM [Concomitant]
  3. AVANDIA [Concomitant]
  4. FOLIC ACID [Concomitant]
  5. LEVOTHYROXINE [Concomitant]
  6. QUINADINE GLUCONATE [Concomitant]
  7. WARFARIN [Concomitant]

REACTIONS (13)
  - ARTHRALGIA [None]
  - ATRIAL FIBRILLATION [None]
  - BACK PAIN [None]
  - CARDIAC ARREST [None]
  - CEREBROVASCULAR ACCIDENT [None]
  - COAGULOPATHY [None]
  - DIABETES MELLITUS [None]
  - DIFFICULTY IN WALKING [None]
  - EPISTAXIS [None]
  - HYPOTHYROIDISM [None]
  - NEUROPATHY [None]
  - PAIN IN EXTREMITY [None]
  - RENAL FAILURE CHRONIC [None]
